FAERS Safety Report 10402323 (Version 2)
Quarter: 2014Q3

REPORT INFORMATION
  Report Type: Spontaneous
  Country: US (occurrence: None)
  Receive Date: 20130815
  Receipt Date: 20140815
  Transmission Date: 20150326
  Serious: Yes (Other)
  Sender: FDA-Public Use
  Company Number: ADR-2013-00019

PATIENT
  Sex: Male

DRUGS (2)
  1. BACLOFEN INTRATHECAL [Suspect]
     Active Substance: BACLOFEN
     Indication: MULTIPLE SCLEROSIS
  2. UNSPECIFIED ORAL MEDICATION [Concomitant]
     Active Substance: UNSPECIFIED INGREDIENT

REACTIONS (12)
  - Muscle spasms [None]
  - Sepsis [None]
  - Weight decreased [None]
  - Lower limb fracture [None]
  - Decubitus ulcer [None]
  - Muscle contracture [None]
  - Infection [None]
  - Urinary tract infection [None]
  - Nephrolithiasis [None]
  - Wound [None]
  - No therapeutic response [None]
  - Muscle tightness [None]
